FAERS Safety Report 19205281 (Version 1)
Quarter: 2021Q2

REPORT INFORMATION
  Report Type: Spontaneous
  Country: US (occurrence: US)
  Receive Date: 20210502
  Receipt Date: 20210502
  Transmission Date: 20210717
  Serious: Yes (Disabling)
  Sender: FDA-Public Use
  Company Number: None

PATIENT
  Age: 57 Year
  Sex: Female
  Weight: 54.9 kg

DRUGS (5)
  1. OCREVUS [Suspect]
     Active Substance: OCRELIZUMAB
     Indication: MULTIPLE SCLEROSIS
     Dates: start: 20200313, end: 20200918
  2. ROLLATOR [Concomitant]
  3. MULTI VITAMIN [Concomitant]
     Active Substance: VITAMINS
  4. CANE [Concomitant]
  5. MAVENCLAD [Concomitant]
     Active Substance: CLADRIBINE

REACTIONS (4)
  - Multiple sclerosis [None]
  - Gait disturbance [None]
  - Memory impairment [None]
  - Fall [None]

NARRATIVE: CASE EVENT DATE: 20200906
